FAERS Safety Report 17956050 (Version 1)
Quarter: 2020Q2

REPORT INFORMATION
  Report Type: Spontaneous
  Country: FR (occurrence: FR)
  Receive Date: 20200629
  Receipt Date: 20200629
  Transmission Date: 20200714
  Serious: Yes (Other)
  Sender: FDA-Public Use
  Company Number: FR-TEVA-2020-FR-1792395

PATIENT
  Age: 67 Year
  Sex: Male
  Weight: 133 kg

DRUGS (10)
  1. STAGID [Concomitant]
     Active Substance: METFORMIN PAMOATE
  2. TAZOCILLINE [Suspect]
     Active Substance: PIPERACILLIN SODIUM\TAZOBACTAM SODIUM
     Indication: DERMO-HYPODERMITIS
     Dosage: 16 GRAM
     Route: 042
     Dates: start: 20200314, end: 20200403
  3. BACTRIM [Suspect]
     Active Substance: SULFAMETHOXAZOLE\TRIMETHOPRIM
     Indication: DERMO-HYPODERMITIS
     Dosage: 3 DOSAGE FORMS
     Route: 048
     Dates: start: 20200329, end: 20200331
  4. CALCIPARINE [Suspect]
     Active Substance: HEPARIN CALCIUM
     Indication: PROPHYLAXIS
     Route: 058
     Dates: start: 20200326, end: 20200331
  5. ATORVASTATINE [Concomitant]
     Active Substance: ATORVASTATIN
  6. TRULICITY [Concomitant]
     Active Substance: DULAGLUTIDE
  7. LEVOFLOXACINE [Suspect]
     Active Substance: LEVOFLOXACIN
     Indication: DERMO-HYPODERMITIS
     Dosage: 1000 MG
     Route: 048
     Dates: start: 20200325, end: 20200403
  8. LANSOPRAZOLE. [Suspect]
     Active Substance: LANSOPRAZOLE
     Indication: PROPHYLAXIS
     Dates: start: 202003
  9. CLOPIDOGREL (CHLORHYDRATE DE) [Concomitant]
     Active Substance: CLOPIDOGREL HYDROCHLORIDE
  10. NEURONTIN [Concomitant]
     Active Substance: GABAPENTIN

REACTIONS (2)
  - Neutropenia [Recovered/Resolved]
  - Thrombocytopenia [Recovered/Resolved]

NARRATIVE: CASE EVENT DATE: 20200331
